FAERS Safety Report 4398529-8 (Version None)
Quarter: 2004Q3

REPORT INFORMATION
  Report Type: 
  Country: None (occurrence: None)
  Receive Date: 20040713
  Receipt Date: 20040705
  Transmission Date: 20050211
  Serious: Yes (Other)
  Sender: FDA-Public Use
  Company Number: 2004221488CA

PATIENT
  Age: 31 Year
  Sex: Female
  Weight: 47.6 kg

DRUGS (4)
  1. DEPO-PROVERA [Suspect]
     Indication: CONTRACEPTION
     Dosage: SEE IMAGE
     Route: 030
     Dates: start: 20031201, end: 20031201
  2. DEPO-PROVERA [Suspect]
     Indication: CONTRACEPTION
     Dosage: SEE IMAGE
     Route: 030
     Dates: start: 20040401, end: 20040401
  3. VENTOLIN [Concomitant]
  4. ZYPREXA [Concomitant]

REACTIONS (4)
  - CRYING [None]
  - DEPRESSION [None]
  - SCAR [None]
  - WEIGHT INCREASED [None]
